FAERS Safety Report 12822217 (Version 2)
Quarter: 2016Q4

REPORT INFORMATION
  Report Type: Report from Study
  Country: None (occurrence: US)
  Receive Date: 20161007
  Receipt Date: 20161216
  Transmission Date: 20170207
  Serious: Yes (Hospitalization)
  Sender: FDA-Public Use
  Company Number: US-ABBVIE-16K-163-1721966-00

PATIENT
  Age: 25 Year
  Sex: Female
  Weight: 102.15 kg

DRUGS (5)
  1. HUMIRA [Suspect]
     Active Substance: ADALIMUMAB
     Indication: CROHN^S DISEASE
     Route: 058
     Dates: start: 20160803
  2. TENEX [Concomitant]
     Active Substance: GUANFACINE HYDROCHLORIDE
     Indication: ATTENTION DEFICIT/HYPERACTIVITY DISORDER
  3. EFFEXOR [Concomitant]
     Active Substance: VENLAFAXINE HYDROCHLORIDE
     Indication: MOOD ALTERED
  4. ABILIFY [Concomitant]
     Active Substance: ARIPIPRAZOLE
     Indication: MOOD ALTERED
  5. TENEX [Concomitant]
     Active Substance: GUANFACINE HYDROCHLORIDE
     Indication: TOURETTE^S DISORDER

REACTIONS (4)
  - Abscess [Recovered/Resolved]
  - Stoma site abscess [Unknown]
  - Fatigue [Not Recovered/Not Resolved]
  - Headache [Recovered/Resolved]

NARRATIVE: CASE EVENT DATE: 2016
